APPROVED DRUG PRODUCT: FIRAZYR
Active Ingredient: ICATIBANT ACETATE
Strength: EQ 30MG BASE/3ML (EQ 10MG BASE/ML)
Dosage Form/Route: INJECTABLE;SUBCUTANEOUS
Application: N022150 | Product #001 | TE Code: AP
Applicant: TAKEDA PHARMACEUTICALS USA INC
Approved: Aug 25, 2011 | RLD: Yes | RS: Yes | Type: RX